FAERS Safety Report 21062278 (Version 1)
Quarter: 2022Q3

REPORT INFORMATION
  Report Type: Spontaneous
  Country: US (occurrence: US)
  Receive Date: 20220711
  Receipt Date: 20220711
  Transmission Date: 20221027
  Serious: No
  Sender: FDA-Public Use
  Company Number: US-OCTA-GAM20021US

PATIENT
  Age: 36 Year
  Sex: Female
  Weight: 47 kg

DRUGS (4)
  1. OCTAGAM IMMUNE GLOBULIN (HUMAN) [Suspect]
     Active Substance: HUMAN IMMUNOGLOBULIN G
     Indication: Morphoea
     Route: 042
  2. VITAMINS [Concomitant]
     Active Substance: VITAMINS
     Indication: Product used for unknown indication
     Dosage: 28-0.8 MG DAILY
     Route: 048
  3. ACETAMINOPHEN [Concomitant]
     Active Substance: ACETAMINOPHEN
     Indication: Premedication
  4. CLARITIN [Concomitant]
     Active Substance: LORATADINE
     Indication: Premedication

REACTIONS (4)
  - Pain [Unknown]
  - Headache [Unknown]
  - Pyrexia [Unknown]
  - Heart rate increased [Unknown]

NARRATIVE: CASE EVENT DATE: 20211121
